FAERS Safety Report 25328798 (Version 2)
Quarter: 2025Q3

REPORT INFORMATION
  Report Type: Report from Study
  Country: US (occurrence: US)
  Receive Date: 20250519
  Receipt Date: 20250707
  Transmission Date: 20251021
  Serious: No
  Sender: ACADIA PHARMACEUTICALS
  Company Number: US-ACADIA PHARMACEUTICALS INC.-ACA-2025-PIM-005739

PATIENT
  Age: 73 Year
  Sex: Male

DRUGS (9)
  1. NUPLAZID [Suspect]
     Active Substance: PIMAVANSERIN TARTRATE
     Indication: Parkinson^s disease
     Dosage: 34 MILLIGRAM, QD, AT BEDTIME
     Route: 048
     Dates: start: 20240719
  2. ALLEGRA ALLERGY [Concomitant]
     Active Substance: FEXOFENADINE HYDROCHLORIDE
  3. AMANTADINE [Concomitant]
     Active Substance: AMANTADINE
  4. ASPIRIN [Concomitant]
     Active Substance: ASPIRIN
  5. CARBIDOPA\LEVODOPA [Concomitant]
     Active Substance: CARBIDOPA\LEVODOPA
  6. MAGNESIUM [Concomitant]
     Active Substance: MAGNESIUM
  7. PRAMIPEXOLE [Concomitant]
     Active Substance: PRAMIPEXOLE
  8. TADALAFIL [Concomitant]
     Active Substance: TADALAFIL
  9. WELLBUTRIN XL [Concomitant]
     Active Substance: BUPROPION HYDROCHLORIDE

REACTIONS (2)
  - Product dose omission issue [Unknown]
  - Product dose omission issue [Unknown]

NARRATIVE: CASE EVENT DATE: 20250101
